FAERS Safety Report 9614800 (Version 1)
Quarter: 2013Q4

REPORT INFORMATION
  Report Type: Spontaneous
  Country: None (occurrence: None)
  Receive Date: 20131009
  Receipt Date: 20131009
  Transmission Date: 20140711
  Serious: Yes (Disabling)
  Sender: FDA-Public Use
  Company Number: None

PATIENT
  Age: 22 Year
  Sex: Male
  Weight: 97.52 kg

DRUGS (1)
  1. INVEGA SUSTENNA [Suspect]
     Indication: SCHIZOAFFECTIVE DISORDER
     Dosage: 2 INJECTIONS

REACTIONS (10)
  - Hyperphagia [None]
  - Vomiting [None]
  - Impaired reasoning [None]
  - Paranoia [None]
  - Stereotypy [None]
  - Drug ineffective [None]
  - Depression [None]
  - Hypophagia [None]
  - Fluid intake reduced [None]
  - Anhedonia [None]
